FAERS Safety Report 15651125 (Version 13)
Quarter: 2020Q2

REPORT INFORMATION
  Report Type: Spontaneous
  Country: US (occurrence: US)
  Receive Date: 20181123
  Receipt Date: 20200416
  Transmission Date: 20200713
  Serious: No
  Sender: FDA-Public Use
  Company Number: US-PFIZER INC-2015341721

PATIENT
  Age: 61 Year
  Sex: Female
  Weight: 52 kg

DRUGS (11)
  1. ARTHROTEC [Suspect]
     Active Substance: DICLOFENAC SODIUM\MISOPROSTOL
     Indication: ARTHRITIS
     Dosage: 50 MG, DAILY
     Route: 048
  2. ARTHROTEC [Suspect]
     Active Substance: DICLOFENAC SODIUM\MISOPROSTOL
     Indication: FIBROMYALGIA
     Dosage: 1 DF, 3X/DAY  (MISOPROSTOL 0.2 MG/DICLOFENAC 50 MG)
     Route: 048
  3. AMLODIPINE [Concomitant]
     Active Substance: AMLODIPINE BESYLATE
     Indication: BLOOD PRESSURE ABNORMAL
     Dosage: 5 MG, ONCE A DAY/DAILY
     Dates: start: 2015
  4. PREMARIN [Concomitant]
     Active Substance: ESTROGENS, CONJUGATED
     Indication: FIBROMYALGIA
  5. ARTHROTEC [Suspect]
     Active Substance: DICLOFENAC SODIUM\MISOPROSTOL
     Indication: OSTEOARTHRITIS
     Dosage: 1 DF, 1X/DAY (TABLET OF 200MCG/50MG)
     Route: 048
  6. ARTHROTEC [Suspect]
     Active Substance: DICLOFENAC SODIUM\MISOPROSTOL
     Indication: BACK PAIN
     Dosage: 50 MG, AS NEEDED (50MG 2 A DAY AS NEEDED)
  7. ARTHROTEC [Suspect]
     Active Substance: DICLOFENAC SODIUM\MISOPROSTOL
     Dosage: 1 TABLET WITH FOOD TWICE A DAY (50-0.2 MG)
     Route: 048
  8. ARTHROTEC [Suspect]
     Active Substance: DICLOFENAC SODIUM\MISOPROSTOL
     Dosage: UNK (SHE TAKES 1 AND SOMETIMES SHE TAKES 2 DEPENDING)
  9. PREMARIN [Concomitant]
     Active Substance: ESTROGENS, CONJUGATED
     Indication: LOSS OF PERSONAL INDEPENDENCE IN DAILY ACTIVITIES
     Dosage: 0.45 MG, DAILY
  10. PREMARIN [Concomitant]
     Active Substance: ESTROGENS, CONJUGATED
     Indication: ARTHRITIS
  11. ARTHROTEC [Suspect]
     Active Substance: DICLOFENAC SODIUM\MISOPROSTOL
     Indication: PAIN MANAGEMENT
     Dosage: 1 DF, 2X/DAY (1 TABLET OF 0.2MG/50MG, TWICE A DAY WITH FOOD)
     Route: 048

REACTIONS (3)
  - Blood cholesterol increased [Recovering/Resolving]
  - Intentional product misuse [Unknown]
  - Blood triglycerides increased [Not Recovered/Not Resolved]

NARRATIVE: CASE EVENT DATE: 2003
